FAERS Safety Report 8583655-X (Version None)
Quarter: 2012Q3

REPORT INFORMATION
  Report Type: 
  Country: None (occurrence: None)
  Receive Date: 20120809
  Receipt Date: 20120202
  Transmission Date: 20120928
  Serious: Yes (Other)
  Sender: FDA-Public Use
  Company Number: JP-009507513-2012SP006675

PATIENT
  Sex: Female
  Weight: 42 kg

DRUGS (11)
  1. INTERFERON BETA NOS [Suspect]
     Indication: HEPATITIS C
     Route: 042
     Dates: start: 20110126, end: 20110221
  2. PROGRAF [Concomitant]
     Indication: LIVER TRANSPLANT
     Dosage: 2 MG, UNK
     Route: 048
  3. DEPAS [Concomitant]
     Dosage: THE DIVIDED DOSE FREQUENCY IS UNCERTAIN.
     Route: 048
  4. REBETOL [Suspect]
     Dosage: 200 MG, QD
     Route: 048
     Dates: start: 20110126, end: 20110208
  5. INTERFERON BETA NOS [Suspect]
     Indication: HEPATITIS C
     Dosage: 6 MILLION IU, TIW
     Route: 042
     Dates: start: 20110126, end: 20110221
  6. MUCOSTA [Concomitant]
     Indication: GASTRIC ULCER
     Dosage: THE DIVIDED DOSE FREQUENCY IS UNCERTAIN.
     Route: 048
     Dates: start: 20100818
  7. NOVOLIN R [Concomitant]
     Indication: DIABETES MELLITUS
     Dosage: THE DIVIDED DOSE FREQUENCY IS UNCERTAIN.
     Route: 051
     Dates: end: 20110419
  8. REBETOL [Suspect]
     Dosage: 200 MG, TIW
     Route: 048
     Dates: start: 20110209, end: 20110222
  9. DEPAS [Concomitant]
     Indication: INSOMNIA
     Dosage: 0.5 MG, UNK
     Route: 048
  10. PROGRAF [Concomitant]
     Indication: PROPHYLAXIS AGAINST TRANSPLANT REJECTION
     Dosage: THE DIVIDED DOSE FREQUENCY IS UNCERTAIN.
     Route: 048
     Dates: start: 20060101
  11. RABEPRAZOLE SODIUM [Concomitant]
     Indication: GASTRIC ULCER
     Dosage: THE DIVIDED DOSE FREQUENCY IS UNCERTAIN.
     Route: 048
     Dates: start: 20100818

REACTIONS (1)
  - INTERSTITIAL LUNG DISEASE [None]
